FAERS Safety Report 7137198-0 (Version None)
Quarter: 2010Q4

REPORT INFORMATION
  Report Type: 
  Country: None (occurrence: None)
  Receive Date: 20101206
  Receipt Date: 20070724
  Transmission Date: 20110411
  Serious: Yes (Death)
  Sender: FDA-Public Use
  Company Number: US-ACTELION-A-US2007-17185

PATIENT

DRUGS (12)
  1. ILOPROST INHALATION SOLUTION 5UG US [Suspect]
     Indication: PULMONARY HYPERTENSION
     Dosage: 5 UG, 6-9X DAY
     Route: 055
     Dates: start: 20060613, end: 20070724
  2. ZAROXOLYN [Concomitant]
     Dosage: 5 MG, QD
  3. LASIX [Concomitant]
     Dosage: 40 G, QD
  4. K-DUR [Concomitant]
     Dosage: 20 MEQ, CONT INFUS
  5. TYLENOL-500 [Concomitant]
     Dosage: 500 MG, PRN
  6. COUMADIN [Concomitant]
     Dosage: 2 MG, QD
  7. CRESTOR [Concomitant]
     Dosage: 10 MG, QD
  8. ASPIRIN [Concomitant]
     Dosage: 81 MG, QD
  9. COMBIVENT [Concomitant]
     Dosage: UNK, BID
  10. FLOMAX [Concomitant]
     Dosage: .4 MG, QD
  11. PRILOSEC [Concomitant]
     Dosage: 20 MG, QD
  12. MOBIC [Concomitant]
     Dosage: 7.5 MG, QD
     Route: 055

REACTIONS (1)
  - DEATH [None]
